FAERS Safety Report 20805899 (Version 1)
Quarter: 2022Q2

REPORT INFORMATION
  Report Type: Spontaneous
  Country: US (occurrence: US)
  Receive Date: 20220510
  Receipt Date: 20220510
  Transmission Date: 20220721
  Serious: No
  Sender: FDA-Public Use
  Company Number: US-ALLERGAN-2207457US

PATIENT
  Sex: Male
  Weight: 117.91 kg

DRUGS (1)
  1. VUITY [Suspect]
     Active Substance: PILOCARPINE HYDROCHLORIDE
     Indication: Presbyopia
     Dosage: UNK

REACTIONS (2)
  - Photophobia [Not Recovered/Not Resolved]
  - Therapeutic response decreased [Unknown]
